FAERS Safety Report 4335812-6 (Version None)
Quarter: 2004Q2

REPORT INFORMATION
  Report Type: 
  Country: None (occurrence: None)
  Receive Date: 20040409
  Receipt Date: 20040322
  Transmission Date: 20050107
  Serious: Yes (Other)
  Sender: FDA-Public Use
  Company Number: PHEH2004US03404

PATIENT
  Age: 65 Year
  Sex: Male

DRUGS (5)
  1. ZOMETA [Suspect]
     Indication: PROSTATE CANCER
     Dosage: 4 MG, QMO
     Route: 042
     Dates: start: 20021115
  2. LUPRON [Concomitant]
  3. KETOCONAZOLE [Concomitant]
     Dates: start: 20030729
  4. HYDROCORTISONE [Concomitant]
     Dosage: 20 MG, BID
     Dates: start: 20030729
  5. CELEBREX [Concomitant]

REACTIONS (6)
  - BONE DEBRIDEMENT [None]
  - IMPAIRED HEALING [None]
  - OSTEOMYELITIS [None]
  - PAIN [None]
  - POST PROCEDURAL PAIN [None]
  - TOOTH EXTRACTION [None]
